FAERS Safety Report 25661127 (Version 1)
Quarter: 2025Q3

REPORT INFORMATION
  Report Type: Spontaneous
  Country: US (occurrence: None)
  Receive Date: 20250808
  Receipt Date: 20250808
  Transmission Date: 20251020
  Serious: Yes (Other)
  Sender: FDA-CTU
  Company Number: None

PATIENT
  Age: 20 Month
  Sex: Female

DRUGS (1)
  1. KINERET [Suspect]
     Active Substance: ANAKINRA
     Dosage: 50 MG DAILY SUBCUTANEOUS
     Route: 058
     Dates: start: 20250722, end: 20250805

REACTIONS (2)
  - Rash [None]
  - Hypertransaminasaemia [None]

NARRATIVE: CASE EVENT DATE: 20250805
